FAERS Safety Report 21605562 (Version 1)
Quarter: 2022Q4

REPORT INFORMATION
  Report Type: Spontaneous
  Country: US (occurrence: US)
  Receive Date: 20221116
  Receipt Date: 20221116
  Transmission Date: 20230112
  Serious: No
  Sender: FDA-Public Use
  Company Number: US-BAUSCH-BL-2022-025117

PATIENT
  Age: 23 Year
  Sex: Female
  Weight: 61.290 kg

DRUGS (3)
  1. ONEXTON [Suspect]
     Active Substance: BENZOYL PEROXIDE\CLINDAMYCIN PHOSPHATE
     Indication: Acne
     Route: 061
     Dates: start: 20221106
  2. ONEXTON [Suspect]
     Active Substance: BENZOYL PEROXIDE\CLINDAMYCIN PHOSPHATE
  3. TRETINOIN [Concomitant]
     Active Substance: TRETINOIN
     Indication: Product used for unknown indication
     Route: 065

REACTIONS (5)
  - Application site hypoaesthesia [Unknown]
  - Application site pain [Recovered/Resolved]
  - Application site erythema [Recovered/Resolved]
  - Application site pruritus [Recovered/Resolved]
  - Rash macular [Recovered/Resolved]

NARRATIVE: CASE EVENT DATE: 20221101
